FAERS Safety Report 26059056 (Version 1)
Quarter: 2025Q4

REPORT INFORMATION
  Report Type: Spontaneous
  Country: US (occurrence: US)
  Receive Date: 20251118
  Receipt Date: 20251118
  Transmission Date: 20260118
  Serious: No
  Sender: COLLEGIUM PHARMACEUTICAL
  Company Number: US-COLLEGIUM PHARMACEUTICAL, INC.-20250201726

PATIENT

DRUGS (4)
  1. BELBUCA [Suspect]
     Active Substance: BUPRENORPHINE HYDROCHLORIDE
     Indication: Restless legs syndrome
     Dosage: 150 MICROGRAM AT 6:00 PM
     Route: 002
     Dates: start: 202502
  2. BELBUCA [Suspect]
     Active Substance: BUPRENORPHINE HYDROCHLORIDE
     Dosage: 75 MICROGRAM AT 10:00 PM
     Route: 002
     Dates: start: 202502
  3. LEVOTHYROXINE SODIUM [Concomitant]
     Active Substance: LEVOTHYROXINE SODIUM
     Indication: Thyroid disorder
     Dosage: UNK, UNKNOWN
     Route: 065
  4. NALOXONE [Concomitant]
     Active Substance: NALOXONE
     Indication: Restless legs syndrome
     Dosage: UNK, UNKNOWN
     Route: 065

REACTIONS (3)
  - Product communication issue [Unknown]
  - Product administration error [Unknown]
  - Drug ineffective [Unknown]

NARRATIVE: CASE EVENT DATE: 20250201
